FAERS Safety Report 5875242-9 (Version None)
Quarter: 2008Q3

REPORT INFORMATION
  Report Type: 
  Country: None (occurrence: None)
  Receive Date: 20080909
  Receipt Date: 20080905
  Transmission Date: 20090109
  Serious: Yes (Life-Threatening)
  Sender: FDA-Public Use
  Company Number: JP-ASTRAZENECA-2008AP06961

PATIENT
  Age: 80 Year
  Sex: Female

DRUGS (2)
  1. IRESSA [Suspect]
     Indication: LUNG NEOPLASM MALIGNANT
     Route: 048
  2. MORPHINE HCL ELIXIR [Suspect]
     Dosage: DOSE UNKNOWN
     Route: 065

REACTIONS (1)
  - DIVERTICULAR PERFORATION [None]
